FAERS Safety Report 5086891-2 (Version None)
Quarter: 2006Q3

REPORT INFORMATION
  Report Type: 
  Country: None (occurrence: None)
  Receive Date: 20060818
  Receipt Date: 20060810
  Transmission Date: 20061208
  Serious: Yes (Other)
  Sender: FDA-Public Use
  Company Number: 2006097922

PATIENT
  Age: 71 Year
  Sex: Female
  Weight: 100.6985 kg

DRUGS (8)
  1. LYRICA [Suspect]
     Indication: PAIN
     Dosage: 75 MG (75 MG, 1 IN 1 D)
     Dates: start: 20060810
  2. ZOCOR [Concomitant]
  3. TRILEPTAL [Concomitant]
  4. ACIPHEX [Concomitant]
  5. METFORMIN [Concomitant]
  6. MICARDIS HCT [Concomitant]
  7. COSOPT [Concomitant]
  8. HUMALOG [Concomitant]

REACTIONS (1)
  - BLOOD GLUCOSE INCREASED [None]
